FAERS Safety Report 11502499 (Version 1)
Quarter: 2015Q3

REPORT INFORMATION
  Report Type: Spontaneous
  Country: US (occurrence: US)
  Receive Date: 20150914
  Receipt Date: 20150914
  Transmission Date: 20151125
  Serious: No
  Sender: FDA-Public Use
  Company Number: US-ASTELLAS-2015US021464

PATIENT
  Sex: Male

DRUGS (1)
  1. XTANDI [Suspect]
     Active Substance: ENZALUTAMIDE
     Indication: PROSTATE CANCER
     Dosage: 4 DF (160 MG), ONCE DAILY
     Route: 048
     Dates: start: 20150523

REACTIONS (5)
  - Vomiting [Unknown]
  - Headache [Unknown]
  - Nausea [Unknown]
  - Back pain [Unknown]
  - Eating disorder [Unknown]
